FAERS Safety Report 5360315-X (Version None)
Quarter: 2007Q2

REPORT INFORMATION
  Report Type: 
  Country: None (occurrence: None)
  Receive Date: 20070614
  Receipt Date: 20070530
  Transmission Date: 20071010
  Serious: Yes (Other)
  Sender: FDA-Public Use
  Company Number: 2007S1003677

PATIENT
  Age: 64 Year
  Sex: Female

DRUGS (7)
  1. OXYBUTYNIN CHLORIDE [Suspect]
     Indication: BLADDER SPASM
     Dosage: 10 MG; DAILY; ORAL
     Route: 048
     Dates: start: 20061101, end: 20070420
  2. OXYBUTYNIN CHLORIDE [Suspect]
     Indication: POLLAKIURIA
     Dosage: 10 MG; DAILY; ORAL
     Route: 048
     Dates: start: 20061101, end: 20070420
  3. LEVOTHYROXINE SODIUM [Concomitant]
  4. MELOXICAM [Concomitant]
  5. DICLOFENAC SODIUM [Concomitant]
  6. CALCIUM D3 [Concomitant]
  7. ACETYLSALICYLIC ACID SRT [Concomitant]

REACTIONS (12)
  - ARTHRITIS [None]
  - ASTHENIA [None]
  - BACK PAIN [None]
  - DRUG EFFECT DECREASED [None]
  - HYPERSENSITIVITY [None]
  - HYPERTENSION [None]
  - MIDDLE INSOMNIA [None]
  - MUSCLE INJURY [None]
  - MUSCLE SPASMS [None]
  - MUSCULOSKELETAL STIFFNESS [None]
  - MYALGIA [None]
  - THYROID FUNCTION TEST ABNORMAL [None]
